FAERS Safety Report 12020293 (Version 2)
Quarter: 2016Q1

REPORT INFORMATION
  Report Type: Spontaneous
  Country: JP (occurrence: JP)
  Receive Date: 20160206
  Receipt Date: 20160226
  Transmission Date: 20160526
  Serious: Yes (Death, Life-Threatening, Hospitalization, Other)
  Sender: FDA-Public Use
  Company Number: JP-AMGEN-JPNSP2016014873

PATIENT
  Age: 79 Year
  Sex: Male
  Weight: 59.7 kg

DRUGS (3)
  1. IRINOTECAN HYDROCHLORIDE. [Suspect]
     Active Substance: IRINOTECAN HYDROCHLORIDE
     Dosage: 80 MG, Q2WEEKS
     Route: 041
     Dates: start: 20160107
  2. VECTIBIX [Suspect]
     Active Substance: PANITUMUMAB
     Indication: RECTAL CANCER
     Dosage: 339 MG, Q2WEEKS
     Route: 041
     Dates: start: 20150909, end: 20160107
  3. IRINOTECAN HYDROCHLORIDE. [Suspect]
     Active Substance: IRINOTECAN HYDROCHLORIDE
     Indication: RECTAL CANCER
     Dosage: 115 MG, Q2WEEKS
     Route: 041
     Dates: start: 20150909, end: 20150909

REACTIONS (4)
  - White blood cell count decreased [Fatal]
  - Skin disorder [Fatal]
  - Disseminated intravascular coagulation [Fatal]
  - Platelet count decreased [Fatal]

NARRATIVE: CASE EVENT DATE: 20150916
